FAERS Safety Report 21515241 (Version 1)
Quarter: 2022Q4

REPORT INFORMATION
  Report Type: Spontaneous
  Country: US (occurrence: US)
  Receive Date: 20221027
  Receipt Date: 20221027
  Transmission Date: 20230112
  Serious: No
  Sender: FDA-Public Use
  Company Number: US-PFIZER INC-202201253428

PATIENT
  Age: 82 Year
  Sex: Female
  Weight: 90.72 kg

DRUGS (3)
  1. PREMARIN [Suspect]
     Active Substance: ESTROGENS, CONJUGATED
     Indication: Hormone replacement therapy
     Dosage: 0.3 MG
     Dates: start: 2021
  2. PREMARIN [Suspect]
     Active Substance: ESTROGENS, CONJUGATED
     Dosage: 0.6 MG, 1X/DAY
     Route: 048
     Dates: start: 202207
  3. SYNTHROID [Concomitant]
     Active Substance: LEVOTHYROXINE SODIUM
     Dosage: UNK

REACTIONS (7)
  - Drug ineffective [Unknown]
  - Therapeutic product effect decreased [Unknown]
  - Acne [Unknown]
  - Urticaria [Unknown]
  - Rash macular [Unknown]
  - Skin disorder [Unknown]
  - Drug hypersensitivity [Unknown]
